FAERS Safety Report 11800840 (Version 1)
Quarter: 2015Q4

REPORT INFORMATION
  Report Type: Spontaneous
  Country: US (occurrence: US)
  Receive Date: 20151204
  Receipt Date: 20151204
  Transmission Date: 20160305
  Serious: No
  Sender: FDA-Public Use
  Company Number: US-THE MEDICINES COMPANY-US-MDCO-15-00474

PATIENT
  Age: 55 Year
  Sex: Male
  Weight: 118.04 kg

DRUGS (1)
  1. ORBACTIV [Suspect]
     Active Substance: ORITAVANCIN
     Indication: CELLULITIS STAPHYLOCOCCAL
     Dosage: NOT REPORTED
     Dates: start: 201510

REACTIONS (1)
  - Treatment failure [Unknown]
